FAERS Safety Report 9691982 (Version 1)
Quarter: 2013Q4

REPORT INFORMATION
  Report Type: Spontaneous
  Country: SE (occurrence: SE)
  Receive Date: 20131118
  Receipt Date: 20131118
  Transmission Date: 20140711
  Serious: Yes (Hospitalization)
  Sender: FDA-Public Use
  Company Number: SE-JNJFOC-20131106792

PATIENT
  Age: 58 Year
  Sex: Female

DRUGS (5)
  1. LOPERAMIDE HYDROCHLORIDE [Suspect]
     Indication: DIARRHOEA
     Route: 065
  2. LOPERAMIDE HYDROCHLORIDE [Suspect]
     Indication: DIARRHOEA
     Route: 065
  3. THYROXIN [Concomitant]
     Indication: HYPOTHYROIDISM
     Route: 065
  4. HYDROCHLOROTHIAZIDE [Concomitant]
     Route: 065
  5. ATENOLOL [Concomitant]
     Route: 065

REACTIONS (1)
  - Pancreatitis acute [Recovered/Resolved]
